FAERS Safety Report 7583426-7 (Version None)
Quarter: 2011Q2

REPORT INFORMATION
  Report Type: 
  Country: None (occurrence: None)
  Receive Date: 20110630
  Receipt Date: 20110621
  Transmission Date: 20111010
  Serious: Yes (Hospitalization)
  Sender: FDA-Public Use
  Company Number: US-B.I. PHARMACEUTICALS,INC./RIDGEFIELD-2011-BP-12735BP

PATIENT
  Age: 72 Year
  Sex: Male
  Weight: 96.8 kg

DRUGS (7)
  1. TRAMADOL HCL [Concomitant]
     Dosage: 200 MG
     Dates: start: 20110406
  2. SPIRIVA [Concomitant]
     Dosage: 18 MCG
     Dates: start: 20071003
  3. PRADAXA [Suspect]
     Dosage: 300 MG
     Route: 048
  4. LYRICA [Concomitant]
     Dosage: 300 MG
     Route: 048
     Dates: start: 20071030
  5. CELEBREX [Concomitant]
  6. THIAMINE HCL [Concomitant]
     Dosage: 100 MG
     Route: 048
     Dates: start: 20110406
  7. DIGOXIN [Concomitant]
     Dosage: 0.125 MG
     Route: 048
     Dates: start: 20110315

REACTIONS (1)
  - GASTROINTESTINAL HAEMORRHAGE [None]
